FAERS Safety Report 17964377 (Version 1)
Quarter: 2020Q2

REPORT INFORMATION
  Report Type: Spontaneous
  Country: US (occurrence: US)
  Receive Date: 20200630
  Receipt Date: 20200630
  Transmission Date: 20200714
  Serious: Yes (Hospitalization, Other)
  Sender: FDA-Public Use
  Company Number: US-PFIZER INC-2018073316

PATIENT
  Sex: Female

DRUGS (2)
  1. NARDIL [Suspect]
     Active Substance: PHENELZINE SULFATE
     Dosage: UNK (60MG)
  2. NARDIL [Suspect]
     Active Substance: PHENELZINE SULFATE
     Indication: MIGRAINE
     Dosage: UNK, DAILY
     Dates: start: 1994

REACTIONS (4)
  - Off label use [Unknown]
  - Mental disorder [Unknown]
  - Drug dependence [Unknown]
  - Product use in unapproved indication [Unknown]

NARRATIVE: CASE EVENT DATE: 1994
